FAERS Safety Report 7161887-5 (Version None)
Quarter: 2010Q4

REPORT INFORMATION
  Report Type: 
  Country: None (occurrence: None)
  Receive Date: 20101201
  Receipt Date: 20101201
  Transmission Date: 20110411
  Serious: Yes (Congenital Anomaly)
  Sender: FDA-Public Use
  Company Number: 022159

PATIENT

DRUGS (5)
  1. KEPPRA [Suspect]
     Indication: EPILEPSY
     Dosage: TRANSPLACENTAL
     Route: 064
     Dates: start: 20100501, end: 20100101
  2. DEPAKINE CHRONO (DEPAKINE CHRONO) (NOT SPECIFIED) [Suspect]
     Indication: EPILEPSY
     Dosage: 500 MG BID, TRANSPLACENTAL
     Route: 064
     Dates: end: 20100501
  3. URBANYL (URBANYL) (NOT SPECIFIED) [Suspect]
     Indication: EPILEPSY
     Dosage: 500 MG, TRANSPLACENTAL
     Route: 064
     Dates: end: 20100501
  4. DONORMYL (DONORMYL) [Suspect]
     Indication: POISONING DELIBERATE
     Dosage: 150 MG, TRANSPLACENTAL
     Route: 064
     Dates: start: 20100522, end: 20100522
  5. CIPROFLOXACIN HCL [Concomitant]

REACTIONS (3)
  - EAR MALFORMATION [None]
  - ECHOGRAPHY ABNORMAL [None]
  - MATERNAL DRUGS AFFECTING FOETUS [None]
